FAERS Safety Report 5436021-X (Version None)
Quarter: 2007Q3

REPORT INFORMATION
  Report Type: 
  Country: None (occurrence: None)
  Receive Date: 20070831
  Receipt Date: 20070828
  Transmission Date: 20080115
  Serious: Yes (Hospitalization)
  Sender: FDA-Public Use
  Company Number: B0475914A

PATIENT
  Age: 55 Year
  Sex: Male
  Weight: 70.1 kg

DRUGS (6)
  1. ZANTAC 150 [Suspect]
     Indication: GASTRITIS
     Dosage: 1U TWICE PER DAY
     Route: 042
     Dates: start: 20070517, end: 20070521
  2. UNKNOWN DRUG [Concomitant]
     Route: 042
  3. FLUMARIN [Concomitant]
     Route: 042
  4. NEOLAMIN [Concomitant]
     Route: 042
  5. SOLDEM [Concomitant]
     Route: 042
  6. UNKNOWN DRUG [Concomitant]
     Route: 042

REACTIONS (4)
  - BILIRUBIN CONJUGATED INCREASED [None]
  - BLOOD BILIRUBIN UNCONJUGATED INCREASED [None]
  - HEPATITIS [None]
  - LIVER DISORDER [None]
